FAERS Safety Report 9908077 (Version 1)
Quarter: 2014Q1

REPORT INFORMATION
  Report Type: Spontaneous
  Country: JP (occurrence: None)
  Receive Date: 20140211
  Receipt Date: 20140211
  Transmission Date: 20141002
  Serious: Yes (Death, Other)
  Sender: FDA-Public Use
  Company Number: ABR_01481_2014

PATIENT
  Age: 97 Year
  Sex: Male

DRUGS (10)
  1. ERYTHROCIN [Suspect]
     Indication: PRODUCT USED FOR UNKNOWN INDICATION
     Route: 048
     Dates: start: 20131031, end: 20131210
  2. BAYASPIRIN [Suspect]
     Indication: PRODUCT USED FOR UNKNOWN INDICATION
     Route: 048
  3. EBASTEL [Suspect]
     Indication: PRODUCT USED FOR UNKNOWN INDICATION
     Route: 048
     Dates: start: 20131031
  4. THEODUR [Suspect]
     Indication: PRODUCT USED FOR UNKNOWN INDICATION
     Route: 048
  5. TAKEPRON [Suspect]
     Indication: PRODUCT USED FOR UNKNOWN INDICATION
     Route: 048
  6. CARBOCISTEINE LYSINE [Concomitant]
  7. AMBROXOL HYDROCHLORIDE [Concomitant]
  8. LEVOTHYROXINE SODIUM [Concomitant]
  9. SENNOSIDE /00571901/ [Concomitant]
  10. CYANOCOBALAMIN [Concomitant]

REACTIONS (5)
  - Interstitial lung disease [None]
  - Drug-induced liver injury [None]
  - Aspartate aminotransferase increased [None]
  - Alanine aminotransferase increased [None]
  - Gamma-glutamyltransferase decreased [None]
